FAERS Safety Report 5399571-0 (Version None)
Quarter: 2007Q3

REPORT INFORMATION
  Report Type: 
  Country: None (occurrence: None)
  Receive Date: 20070727
  Receipt Date: 20070717
  Transmission Date: 20080115
  Serious: Yes (Other)
  Sender: FDA-Public Use
  Company Number: US-PFIZER INC-2007031649

PATIENT
  Sex: Female
  Weight: 64 kg

DRUGS (2)
  1. CHANTIX [Suspect]
     Indication: SMOKING CESSATION THERAPY
  2. ALBUTEROL [Concomitant]
     Dosage: TEXT:1 PUFF-FREQ:Q4H
     Route: 055

REACTIONS (6)
  - ABDOMINAL PAIN [None]
  - ANXIETY [None]
  - APATHY [None]
  - DEPRESSED MOOD [None]
  - FATIGUE [None]
  - HAEMATOCHEZIA [None]
